FAERS Safety Report 24662940 (Version 1)
Quarter: 2024Q4

REPORT INFORMATION
  Report Type: Spontaneous
  Country: TR (occurrence: TR)
  Receive Date: 20241126
  Receipt Date: 20241126
  Transmission Date: 20250115
  Serious: Yes (Other)
  Sender: ROCHE
  Company Number: TR-002147023-NVSC2024TR224584

PATIENT
  Age: 76 Year
  Sex: Male

DRUGS (1)
  1. XOLAIR [Suspect]
     Active Substance: OMALIZUMAB
     Indication: Idiopathic urticaria
     Dosage: UNK
     Route: 065

REACTIONS (5)
  - Hypothermia [Unknown]
  - Malaise [Unknown]
  - Illness [Unknown]
  - Product dose omission issue [Unknown]
  - Product supply issue [Unknown]
